FAERS Safety Report 5425567-6 (Version None)
Quarter: 2007Q3

REPORT INFORMATION
  Report Type: 
  Country: None (occurrence: None)
  Receive Date: 20070731
  Receipt Date: 20070404
  Transmission Date: 20080115
  Serious: No
  Sender: FDA-Public Use
  Company Number: US200704001303

PATIENT
  Age: 61 Year
  Sex: Female

DRUGS (7)
  1. BYETTA [Suspect]
     Dosage: 5 UG, 2/D; SUBCUTANEOUS 10 UG, 2/D; SUBCUTANEOUS
     Route: 058
     Dates: start: 20060101, end: 20061201
  2. BYETTA [Suspect]
     Dosage: 5 UG, 2/D; SUBCUTANEOUS 10 UG, 2/D; SUBCUTANEOUS
     Route: 058
     Dates: start: 20061201, end: 20070401
  3. BYETTA [Suspect]
     Dosage: 5 UG, 2/D; SUBCUTANEOUS 10 UG, 2/D; SUBCUTANEOUS
     Route: 058
     Dates: start: 20070401
  4. BYETTA [Suspect]
  5. EXENATIDE PEN (EXENATIDE PEN) [Concomitant]
  6. GLIPIZIDE [Concomitant]
  7. METFORMIN HCL [Concomitant]

REACTIONS (5)
  - FEELING OF BODY TEMPERATURE CHANGE [None]
  - MALAISE [None]
  - NAUSEA [None]
  - OVERDOSE [None]
  - STOMACH DISCOMFORT [None]
